FAERS Safety Report 8232731-X (Version None)
Quarter: 2012Q1

REPORT INFORMATION
  Report Type: 
  Country: None (occurrence: None)
  Receive Date: 20120323
  Receipt Date: 20120315
  Transmission Date: 20120608
  Serious: Yes (Hospitalization)
  Sender: FDA-Public Use
  Company Number: US-AMGEN-USASP2012017284

PATIENT
  Age: 66 Year
  Sex: Male

DRUGS (2)
  1. ENBREL [Suspect]
     Indication: PSORIASIS
     Dosage: 50 MG, QWK
     Dates: start: 20050201, end: 20120105
  2. ENBREL [Suspect]
     Indication: PSORIATIC ARTHROPATHY

REACTIONS (7)
  - ARTERIAL BYPASS OPERATION [None]
  - AORTIC VALVE REPLACEMENT [None]
  - CATHETERISATION CARDIAC [None]
  - ENDARTERECTOMY [None]
  - PSORIATIC ARTHROPATHY [None]
  - PSORIASIS [None]
  - ASTHMA [None]
